FAERS Safety Report 18353653 (Version 1)
Quarter: 2020Q4

REPORT INFORMATION
  Report Type: Spontaneous
  Country: US (occurrence: US)
  Receive Date: 20201006
  Receipt Date: 20201006
  Transmission Date: 20210114
  Serious: No
  Sender: FDA-Public Use
  Company Number: US-ROCHE-2648451

PATIENT
  Sex: Male

DRUGS (1)
  1. ZELBORAF [Suspect]
     Active Substance: VEMURAFENIB
     Indication: LEUKAEMIA
     Dosage: Q12 HRS. ONGOING:YES
     Route: 048
     Dates: start: 20200616

REACTIONS (4)
  - Rash [Unknown]
  - Intentional product use issue [Unknown]
  - Off label use [Unknown]
  - Pruritus [Unknown]
